FAERS Safety Report 4834576-7 (Version None)
Quarter: 2005Q4

REPORT INFORMATION
  Report Type: 
  Country: None (occurrence: None)
  Receive Date: 20051122
  Receipt Date: 20050408
  Transmission Date: 20060501
  Serious: No
  Sender: FDA-Public Use
  Company Number: US-BRISTOL-MYERS SQUIBB COMPANY-12928412

PATIENT
  Sex: Male

DRUGS (1)
  1. PRAVACHOL [Suspect]
     Dosage: STOPPED AND RESTARTED 09-MAR-2005.
     Dates: start: 20011201

REACTIONS (3)
  - INSOMNIA [None]
  - NERVOUS SYSTEM DISORDER [None]
  - TREMOR [None]
